FAERS Safety Report 15312832 (Version 3)
Quarter: 2019Q1

REPORT INFORMATION
  Report Type: Spontaneous
  Country: FR (occurrence: FR)
  Receive Date: 20180823
  Receipt Date: 20190308
  Transmission Date: 20190417
  Serious: Yes (Hospitalization, Other)
  Sender: FDA-Public Use
  Company Number: FR-LUNDBECK-DKLU2053476

PATIENT
  Age: 63 Year
  Sex: Male

DRUGS (1)
  1. CLOBAZAM. [Suspect]
     Active Substance: CLOBAZAM
     Indication: PRODUCT USED FOR UNKNOWN INDICATION
     Dosage: MAXIMUM OF 120 TABLETS
     Route: 065

REACTIONS (12)
  - Streptococcal infection [Unknown]
  - Somnolence [Unknown]
  - Pyrexia [Unknown]
  - Head injury [Unknown]
  - Intentional product misuse [Unknown]
  - Disorientation [Unknown]
  - Toxicity to various agents [Unknown]
  - Drug level increased [Unknown]
  - CYP2C19 polymorphism [Unknown]
  - Mental impairment [Unknown]
  - Intentional overdose [Unknown]
  - Confusional state [Unknown]
